FAERS Safety Report 13151328 (Version 1)
Quarter: 2017Q1

REPORT INFORMATION
  Report Type: Spontaneous
  Country: US (occurrence: US)
  Receive Date: 20170125
  Receipt Date: 20170125
  Transmission Date: 20170428
  Serious: Yes (Other)
  Sender: FDA-Public Use
  Company Number: US-GALDERMA-US17000473

PATIENT
  Sex: Female

DRUGS (1)
  1. CETAPHIL [Suspect]
     Active Substance: AVOBENZONE\OCTOCRYLENE\TRICLOSAN
     Route: 061
     Dates: start: 201701, end: 201701

REACTIONS (10)
  - Emotional distress [Unknown]
  - Pruritus [Unknown]
  - Flushing [Unknown]
  - Choking sensation [Unknown]
  - Lip swelling [Recovered/Resolved]
  - Urticaria [Not Recovered/Not Resolved]
  - Dry mouth [Unknown]
  - Erythema [Unknown]
  - Activities of daily living impaired [Recovered/Resolved]
  - Pain [Unknown]

NARRATIVE: CASE EVENT DATE: 201701
